FAERS Safety Report 7225613-3 (Version None)
Quarter: 2011Q1

REPORT INFORMATION
  Report Type: 
  Country: None (occurrence: None)
  Receive Date: 20110110
  Receipt Date: 20110110
  Transmission Date: 20110831
  Serious: Yes (Life-Threatening)
  Sender: FDA-Public Use
  Company Number: None

PATIENT
  Age: 73 Year
  Sex: Female
  Weight: 56.6996 kg

DRUGS (4)
  1. VALACYCLOVIR [Suspect]
     Indication: HERPES VIRUS INFECTION
     Dosage: 1 TABLET TWICE A DAY 3 DAYS
     Dates: start: 20100831
  2. VALACYCLOVIR [Suspect]
     Indication: HERPES VIRUS INFECTION
     Dosage: 1 TABLET TWICE A DAY 3 DAYS
     Dates: start: 20101126, end: 20101128
  3. VALACYCLOVIR [Suspect]
     Indication: HERPES VIRUS INFECTION
     Dosage: 1 TABLET TWICE A DAY 3 DAYS
     Dates: start: 20100901, end: 20100902
  4. VALACYCLOVIR [Suspect]
     Indication: HERPES VIRUS INFECTION
     Dosage: 1 TABLET TWICE A DAY 3 DAYS
     Dates: start: 20101210

REACTIONS (6)
  - ASTHENIA [None]
  - PYREXIA [None]
  - PRESYNCOPE [None]
  - CHEST PAIN [None]
  - CHEST DISCOMFORT [None]
  - DYSPNOEA [None]
